FAERS Safety Report 7790460-0 (Version None)
Quarter: 2011Q3

REPORT INFORMATION
  Report Type: 
  Country: None (occurrence: None)
  Receive Date: 20110930
  Receipt Date: 20110915
  Transmission Date: 20111222
  Serious: Yes (Death, Hospitalization)
  Sender: FDA-Public Use
  Company Number: US-JUTA GMBH-2011-15444

PATIENT
  Age: 7 Year
  Sex: Female

DRUGS (2)
  1. DOXYCYCLINE HYCLATE [Suspect]
     Indication: HAEMANGIOMA
     Dosage: UNK
  2. INTERFERON ALFA-2A [Suspect]
     Indication: HAEMANGIOMA
     Dosage: UNK

REACTIONS (2)
  - DRUG INEFFECTIVE [None]
  - DISEASE PROGRESSION [None]
